FAERS Safety Report 12700490 (Version 1)
Quarter: 2016Q3

REPORT INFORMATION
  Report Type: Spontaneous
  Country: US (occurrence: US)
  Receive Date: 20160830
  Receipt Date: 20160830
  Transmission Date: 20161109
  Serious: No
  Sender: FDA-Public Use
  Company Number: US-SA-2016SA070204

PATIENT
  Age: 35 Year
  Sex: Male
  Weight: 97.4 kg

DRUGS (1)
  1. FABRAZYME [Suspect]
     Active Substance: AGALSIDASE BETA
     Indication: FABRY^S DISEASE
     Route: 041

REACTIONS (12)
  - Vomiting [Unknown]
  - Nausea [Unknown]
  - Asthenia [Unknown]
  - Muscle spasms [Recovering/Resolving]
  - Tremor [Recovering/Resolving]
  - Peripheral swelling [Unknown]
  - Feeling abnormal [Unknown]
  - Chills [Recovering/Resolving]
  - Pain in extremity [Unknown]
  - Swollen tongue [Recovering/Resolving]
  - Hypersensitivity [Recovering/Resolving]
  - Dysphagia [Recovering/Resolving]

NARRATIVE: CASE EVENT DATE: 20160325
